FAERS Safety Report 6935013-9 (Version None)
Quarter: 2010Q3

REPORT INFORMATION
  Report Type: 
  Country: None (occurrence: None)
  Receive Date: 20100822
  Receipt Date: 20100809
  Transmission Date: 20110219
  Serious: Yes (Death, Hospitalization)
  Sender: FDA-Public Use
  Company Number: PHHY2010DE39471

PATIENT
  Age: 79 Year
  Sex: Female

DRUGS (15)
  1. AFINITOR [Suspect]
     Indication: RENAL CELL CARCINOMA
     Dosage: 10 MG PER DAY
     Route: 048
     Dates: start: 20091217, end: 20100608
  2. BISPHOSPHONATES [Concomitant]
  3. MARCUMAR [Concomitant]
  4. DUSODRIL [Concomitant]
     Dosage: UNK
  5. INDOMETHACIN [Concomitant]
     Dosage: UNK
  6. VOTUM /ARG/ [Concomitant]
     Dosage: UNK
  7. METOPROLOL TARTRATE [Concomitant]
     Dosage: HALF DF TWICE A DAY
  8. PRAVASTATIN [Concomitant]
     Dosage: 0.5 DF, QD
  9. AMLOBESILAT [Concomitant]
  10. LANSOPRAZOLE [Concomitant]
  11. CALCIUM SANDOZ [Concomitant]
  12. TRIMIPRAMINE [Concomitant]
  13. OPIPRAMOL [Concomitant]
  14. NOVAMINSULFON ^BRAUN^ [Concomitant]
  15. NULYTELY [Concomitant]

REACTIONS (7)
  - ACIDOSIS [None]
  - DYSPNOEA [None]
  - GENERAL PHYSICAL HEALTH DETERIORATION [None]
  - MULTI-ORGAN FAILURE [None]
  - PYURIA [None]
  - URINARY TRACT INFECTION [None]
  - UROSEPSIS [None]
